FAERS Safety Report 24746405 (Version 1)
Quarter: 2024Q4

REPORT INFORMATION
  Report Type: Report from Study
  Country: CA (occurrence: CA)
  Receive Date: 20241218
  Receipt Date: 20241218
  Transmission Date: 20250115
  Serious: Yes (Other)
  Sender: ABBVIE
  Company Number: CA-ABBVIE-6037484

PATIENT
  Age: 55 Year
  Sex: Female

DRUGS (1)
  1. QULIPTA [Suspect]
     Active Substance: ATOGEPANT
     Indication: Migraine
     Route: 048
     Dates: start: 20241120, end: 20241206

REACTIONS (9)
  - Neurogenic shock [Unknown]
  - Constipation [Unknown]
  - Migraine [Unknown]
  - Faecaloma [Unknown]
  - Adverse drug reaction [Unknown]
  - Asthenia [Unknown]
  - Nausea [Unknown]
  - Drug ineffective [Unknown]
  - Constipation [Unknown]

NARRATIVE: CASE EVENT DATE: 20240101
